FAERS Safety Report 13906687 (Version 5)
Quarter: 2018Q1

REPORT INFORMATION
  Report Type: Spontaneous
  Country: US (occurrence: US)
  Receive Date: 20170825
  Receipt Date: 20180131
  Transmission Date: 20180508
  Serious: Yes (Hospitalization)
  Sender: FDA-Public Use
  Company Number: US-ACTELION-A-NJ2017-158623

PATIENT
  Age: 82 Year
  Sex: Male
  Weight: 82.99 kg

DRUGS (2)
  1. OPSUMIT [Suspect]
     Active Substance: MACITENTAN
     Indication: PULMONARY ARTERIAL HYPERTENSION
     Dosage: 10 MG, QD
     Route: 048
     Dates: start: 20170928
  2. WARFARIN [Concomitant]
     Active Substance: WARFARIN

REACTIONS (5)
  - Dyspnoea [Unknown]
  - Blood potassium decreased [Unknown]
  - Urinary tract infection [Unknown]
  - Infection [Not Recovered/Not Resolved]
  - Inflammation [Unknown]

NARRATIVE: CASE EVENT DATE: 201710
